FAERS Safety Report 10959793 (Version 1)
Quarter: 2015Q1

REPORT INFORMATION
  Report Type: Spontaneous
  Country: US (occurrence: None)
  Receive Date: 20150325
  Receipt Date: 20150325
  Transmission Date: 20150721
  Serious: Yes (Hospitalization)
  Sender: FDA-Public Use
  Company Number: COR_00264_2015

PATIENT
  Age: 81 Year
  Sex: Male

DRUGS (2)
  1. PEMETREXED [Suspect]
     Active Substance: PEMETREXED
     Indication: MESOTHELIOMA
     Dosage: DF
  2. CARBOPLATIN. [Suspect]
     Active Substance: CARBOPLATIN
     Indication: MESOTHELIOMA
     Dosage: DF

REACTIONS (4)
  - Malnutrition [None]
  - Superior mesenteric artery syndrome [None]
  - Abnormal loss of weight [None]
  - Blood potassium decreased [None]
